FAERS Safety Report 14531443 (Version 1)
Quarter: 2018Q1

REPORT INFORMATION
  Report Type: Spontaneous
  Country: FR (occurrence: FR)
  Receive Date: 20180214
  Receipt Date: 20180214
  Transmission Date: 20180509
  Serious: Yes (Other)
  Sender: FDA-Public Use
  Company Number: FR-BAXTER-2018BAX004850

PATIENT
  Age: 36 Year
  Sex: Male
  Weight: 86 kg

DRUGS (6)
  1. UROMITEXAN 400 MG, SOLUTION INJECTABLE IV [Suspect]
     Active Substance: MESNA
     Indication: SARCOMA
     Dosage: 7.2G SUR 24H
     Route: 042
     Dates: start: 20180117, end: 20180118
  2. DOXORUBICIN TEVA [Suspect]
     Active Substance: DOXORUBICIN
     Indication: SARCOMA
     Route: 042
     Dates: start: 20180117, end: 20180117
  3. IFOSFAMIDE EG [Suspect]
     Active Substance: IFOSFAMIDE
     Indication: SARCOMA
     Dosage: 6G SUR 12H,
     Route: 042
     Dates: start: 20180117, end: 20180118
  4. VENLAFAXINE [Concomitant]
     Active Substance: VENLAFAXINE HYDROCHLORIDE
     Indication: PRODUCT USED FOR UNKNOWN INDICATION
     Route: 065
  5. LORAZEPAM. [Concomitant]
     Active Substance: LORAZEPAM
     Indication: PRODUCT USED FOR UNKNOWN INDICATION
     Route: 065
  6. CLOZAPINE. [Concomitant]
     Active Substance: CLOZAPINE
     Indication: PRODUCT USED FOR UNKNOWN INDICATION
     Route: 065

REACTIONS (1)
  - Encephalopathy [Recovered/Resolved]

NARRATIVE: CASE EVENT DATE: 20180119
